FAERS Safety Report 7348592 (Version 4)
Quarter: 2013Q1

REPORT INFORMATION
  Report Type: Report from Study
  Country: JP (occurrence: JP)
  Receive Date: 20100408
  Receipt Date: 20130109
  Transmission Date: 20140127
  Serious: Yes (Death)
  Sender: FDA-Public Use
  Company Number: JP-ROCHE-695814

PATIENT
  Age: 74 Year
  Sex: Female

DRUGS (17)
  1. TOCILIZUMAB [Suspect]
     Indication: RHEUMATOID ARTHRITIS
     Route: 041
     Dates: start: 20081010, end: 20081010
  2. TOCILIZUMAB [Suspect]
     Route: 041
     Dates: start: 20081105, end: 20081105
  3. TOCILIZUMAB [Suspect]
     Route: 041
     Dates: start: 20081205, end: 20081205
  4. TOCILIZUMAB [Suspect]
     Route: 041
     Dates: start: 20090107, end: 20090107
  5. TOCILIZUMAB [Suspect]
     Route: 041
     Dates: start: 20090204, end: 20090204
  6. TOCILIZUMAB [Suspect]
     Route: 041
     Dates: start: 20090304, end: 20090304
  7. TOCILIZUMAB [Suspect]
     Route: 041
     Dates: start: 20090408, end: 20091209
  8. PREDNISOLONE [Suspect]
     Indication: RHEUMATOID ARTHRITIS
     Route: 048
     Dates: end: 20081104
  9. PREDNISOLONE [Suspect]
     Indication: RHEUMATOID ARTHRITIS
     Route: 048
     Dates: start: 20081105, end: 20090407
  10. PREDNISOLONE [Suspect]
     Indication: RHEUMATOID ARTHRITIS
     Route: 048
     Dates: start: 20090408, end: 20091221
  11. ISONIAZID [Concomitant]
     Dosage: DRUG REPORTED AS: ISCOTIN(ISONIAZID)?DOSE FORM: PERORAL AGENT
     Route: 048
     Dates: start: 20080919, end: 20091221
  12. RISEDRONIC ACID [Concomitant]
     Indication: OSTEOPOROSIS
     Dosage: DRUG REPORTED AS: BENET(SODIUM RISEDRONATE HYDRATE)
     Route: 048
     Dates: start: 20080919, end: 20091221
  13. RABEPRAZOLE [Concomitant]
     Indication: GASTRIC ULCER
     Dosage: DRUG: PARIET(SODIUM RABEPRAZOLE)
     Route: 048
     Dates: start: 20080919, end: 20091221
  14. LIMAPROST [Concomitant]
     Indication: LUMBAR SPINAL STENOSIS
     Dosage: DRUG: OPALMON(LIMAPROST ALFADEX)
     Route: 048
     Dates: start: 20080919, end: 20091221
  15. PYRIDOXAL PHOSPHATE [Concomitant]
     Indication: PROPHYLAXIS
     Dosage: DRUG REPORTED AS: PYDOXAL TAB(PYRIDOXAL PHOSPHATE)
     Route: 048
     Dates: start: 20080919, end: 20091221
  16. SULFAMETHOXAZOLE/TRIMETHOPRIM [Concomitant]
     Indication: PROPHYLAXIS
     Dosage: DRUG: BAKTAR(SULFAMETHOXAZOLE_TRIMETHOPRIM)
     Route: 048
     Dates: start: 20080919, end: 20091221
  17. MELOXICAM [Concomitant]
     Indication: RHEUMATOID ARTHRITIS
     Dosage: DRUG:  MOBIC(MELOXICAM)
     Route: 048
     Dates: start: 20080919, end: 20091221

REACTIONS (7)
  - Renal failure acute [Fatal]
  - Pyelonephritis [Fatal]
  - Disseminated intravascular coagulation [Fatal]
  - Arrhythmia [Fatal]
  - Renal abscess [Fatal]
  - Sepsis [Fatal]
  - Hyperkalaemia [Fatal]
